FAERS Safety Report 7078518-5 (Version None)
Quarter: 2010Q4

REPORT INFORMATION
  Report Type: 
  Country: None (occurrence: None)
  Receive Date: 20101101
  Receipt Date: 20101101
  Transmission Date: 20110411
  Serious: Yes (Disabling, Other)
  Sender: FDA-Public Use
  Company Number: None

PATIENT
  Age: 28 Year
  Sex: Female
  Weight: 59.8748 kg

DRUGS (1)
  1. CREST PROHEALTH ORAL RINSE 0.007% CREST [Suspect]
     Indication: DENTAL DISORDER PROPHYLAXIS
     Dosage: HALF A CAP FULL ONCE DAILY PO
     Route: 048

REACTIONS (5)
  - MUCOUS MEMBRANE DISORDER [None]
  - ORAL DISCOMFORT [None]
  - ORAL DISORDER [None]
  - PARAESTHESIA ORAL [None]
  - TOOTH DISCOLOURATION [None]
